FAERS Safety Report 9015949 (Version 1)
Quarter: 2013Q1

REPORT INFORMATION
  Report Type: Spontaneous
  Country: US (occurrence: US)
  Receive Date: 20130116
  Receipt Date: 20130116
  Transmission Date: 20140127
  Serious: Yes (Hospitalization)
  Sender: FDA-Public Use
  Company Number: US-MERCK-1301XAA004079

PATIENT
  Sex: Male

DRUGS (14)
  1. MONTELUKAST SODIUM [Suspect]
     Indication: ASTHMA
     Dosage: 10 MG, QD
     Route: 048
  2. MONTELUKAST SODIUM [Suspect]
     Indication: BENIGN PROSTATIC HYPERPLASIA
  3. MONTELUKAST SODIUM [Suspect]
     Indication: HYPERTONIC BLADDER
  4. MONTELUKAST SODIUM [Suspect]
     Indication: MALAISE
  5. MONTELUKAST SODIUM [Suspect]
     Indication: OSTEOARTHRITIS
  6. HOCHU-EKKI-TO [Suspect]
  7. SPIRIVA [Suspect]
     Dosage: 18 UG, 1X/DAY
     Route: 055
  8. NORVASC [Suspect]
     Dosage: 5 MG, BID
     Route: 048
  9. VESICARE [Suspect]
     Dosage: 5 MG, QD
     Route: 048
  10. TAMSULOSIN HYDROCHLORIDE [Suspect]
     Dosage: 0.2 MG, QD
     Route: 048
  11. CELECOXIB [Suspect]
     Dosage: 200 MG, QD
     Route: 048
  12. SELBEX [Concomitant]
  13. DICLOFENAC SODIUM [Concomitant]
  14. HOKUNALIN [Concomitant]

REACTIONS (1)
  - Cardiac failure [Unknown]
